FAERS Safety Report 5873530-3 (Version None)
Quarter: 2008Q3

REPORT INFORMATION
  Report Type: 
  Country: None (occurrence: None)
  Receive Date: 20080908
  Receipt Date: 20080827
  Transmission Date: 20090109
  Serious: Yes (Other)
  Sender: FDA-Public Use
  Company Number: US-WYE-H03937808

PATIENT
  Sex: Female
  Weight: 78 kg

DRUGS (3)
  1. EFFEXOR XR [Suspect]
     Indication: BIPOLAR DISORDER
     Dosage: 75 MG FREQUENCY UNSPECIFIED
     Dates: start: 20010101
  2. MARVELON [Concomitant]
     Dosage: UNKNOWN
  3. CHANTIX [Interacting]
     Indication: EX-TOBACCO USER
     Route: 048
     Dates: start: 20080414

REACTIONS (5)
  - ANXIETY [None]
  - DRUG INTERACTION [None]
  - DYSPNOEA [None]
  - EYE DISORDER [None]
  - MANIA [None]
